FAERS Safety Report 18889457 (Version 2)
Quarter: 2021Q1

REPORT INFORMATION
  Report Type: Spontaneous
  Country: US (occurrence: US)
  Receive Date: 20210213
  Receipt Date: 20210218
  Transmission Date: 20210420
  Serious: No
  Sender: FDA-Public Use
  Company Number: NVSC2021US030689

PATIENT
  Sex: Female

DRUGS (1)
  1. TRILEPTAL [Suspect]
     Active Substance: OXCARBAZEPINE
     Indication: SEIZURE
     Route: 065

REACTIONS (21)
  - Depression [Unknown]
  - Heart rate irregular [Unknown]
  - Learning disorder [Unknown]
  - Thinking abnormal [Unknown]
  - Agitation [Unknown]
  - Confusional state [Unknown]
  - Disturbance in attention [Unknown]
  - Coordination abnormal [Unknown]
  - Bone disorder [Unknown]
  - Anxiety [Unknown]
  - Back pain [Unknown]
  - Amnesia [Unknown]
  - Nervousness [Unknown]
  - Heart rate increased [Unknown]
  - Supraventricular tachycardia [Unknown]
  - Nervous system disorder [Unknown]
  - Dysuria [Unknown]
  - Irritability [Unknown]
  - Eye pain [Unknown]
  - Mood altered [Unknown]
  - Memory impairment [Unknown]
